FAERS Safety Report 7602724-1 (Version None)
Quarter: 2011Q3

REPORT INFORMATION
  Report Type: 
  Country: None (occurrence: None)
  Receive Date: 20110711
  Receipt Date: 20110711
  Transmission Date: 20111222
  Serious: Yes (Other)
  Sender: FDA-Public Use
  Company Number: None

PATIENT
  Age: 22 Year
  Weight: 77.1115 kg

DRUGS (1)
  1. PROPECIA [Suspect]
     Indication: ALOPECIA
     Dosage: 1MG 1 DAILY PO
     Route: 048

REACTIONS (27)
  - APATHY [None]
  - LISTLESS [None]
  - ANXIETY [None]
  - ABNORMAL DREAMS [None]
  - MIDDLE INSOMNIA [None]
  - PERIORBITAL DISORDER [None]
  - EJACULATION DISORDER [None]
  - TESTICULAR ATROPHY [None]
  - MEMORY IMPAIRMENT [None]
  - AGGRESSION [None]
  - RAPID EYE MOVEMENTS SLEEP ABNORMAL [None]
  - PENILE SIZE REDUCED [None]
  - PARAESTHESIA OF GENITAL MALE [None]
  - COGNITIVE DISORDER [None]
  - VISION BLURRED [None]
  - SKIN DISCOLOURATION [None]
  - PENIS DISORDER [None]
  - EJACULATION FAILURE [None]
  - SCROTAL DISORDER [None]
  - SEXUAL DYSFUNCTION [None]
  - ERECTILE DYSFUNCTION [None]
  - ORGASM ABNORMAL [None]
  - PENILE CURVATURE [None]
  - DEPRESSION [None]
  - ASTHENIA [None]
  - PEYRONIE'S DISEASE [None]
  - LOSS OF LIBIDO [None]
